FAERS Safety Report 7135001-6 (Version None)
Quarter: 2010Q4

REPORT INFORMATION
  Report Type: 
  Country: None (occurrence: None)
  Receive Date: 20101118
  Receipt Date: 20101108
  Transmission Date: 20110411
  Serious: Yes (Death)
  Sender: FDA-Public Use
  Company Number: B0684170A

PATIENT
  Age: 52 Year
  Sex: Female

DRUGS (3)
  1. EPOPROSTENOL SODIUM [Suspect]
     Indication: HAEMANGIOMA
  2. PREDNISONE [Concomitant]
  3. CYCLOPHOSPHAMIDE [Concomitant]

REACTIONS (5)
  - ACUTE PULMONARY OEDEMA [None]
  - BRADYCARDIA [None]
  - CARDIAC ARREST [None]
  - PULMONARY VENO-OCCLUSIVE DISEASE [None]
  - RESPIRATORY FAILURE [None]
